FAERS Safety Report 8963105 (Version 1)
Quarter: 2012Q4

REPORT INFORMATION
  Report Type: 
  Country: US (occurrence: US)
  Receive Date: 20121213
  Receipt Date: 20121213
  Transmission Date: 20130627
  Serious: Yes (Hospitalization)
  Sender: FDA-Public Use
  Company Number: US-ASTRAZENECA-2012SE92600

PATIENT
  Age: 22188 Day
  Sex: Male

DRUGS (29)
  1. NEXIUM [Suspect]
     Indication: GASTRITIS PROPHYLAXIS
     Route: 048
     Dates: start: 20100413, end: 20120812
  2. NEXIUM [Suspect]
     Indication: GASTRITIS PROPHYLAXIS
     Route: 048
  3. CELECOXIB,IBUPROFEN,NAPROXEN,PLACEBO [Suspect]
     Indication: OSTEOARTHRITIS
     Dosage: THREE TIMES A DAY
     Route: 048
     Dates: start: 20100413, end: 20120812
  4. CELECOXIB,IBUPROFEN,NAPROXEN,PLACEBO [Suspect]
     Indication: OSTEOARTHRITIS
     Dosage: THREE TIMES A DAY
     Route: 048
  5. LUBIPROSTONE [Suspect]
     Indication: CONSTIPATION
     Route: 048
  6. REGLAN [Suspect]
     Route: 048
     Dates: start: 20120411
  7. VALIUM [Concomitant]
     Indication: ANXIETY
  8. DELTASONE [Concomitant]
     Dates: start: 20120628
  9. FLONASE [Concomitant]
     Indication: SEASONAL ALLERGY
     Dates: start: 20120629, end: 20120929
  10. SALBUMOL [Concomitant]
     Indication: CHRONIC OBSTRUCTIVE PULMONARY DISEASE
  11. NIZORAL [Concomitant]
     Indication: PRURITUS
  12. SYNTHROID [Concomitant]
     Indication: HYPOTHYROIDISM
  13. XYLOCAINE [Concomitant]
     Indication: PAIN IN EXTREMITY
  14. XYLOCAINE [Concomitant]
     Indication: NEUROPATHY PERIPHERAL
  15. ALDACTONE [Concomitant]
  16. MOMETASONE FUROATE [Concomitant]
  17. AMBIEN [Concomitant]
     Dates: start: 20120326, end: 20120926
  18. DUONEB [Concomitant]
  19. VENTOLIN [Concomitant]
     Indication: WHEEZING
     Dates: start: 20120215
  20. LASIX [Concomitant]
     Dates: start: 20120203
  21. PLAVIX [Concomitant]
  22. CYMBALTA [Concomitant]
  23. SPIRIVA HANDIHALER [Concomitant]
     Dates: start: 20120118
  24. NORCO [Concomitant]
  25. CLARITIN [Concomitant]
     Indication: SEASONAL ALLERGY
  26. VYTORIN [Concomitant]
  27. MS CONTIN [Concomitant]
  28. CORDARONE [Concomitant]
     Dates: start: 20110520
  29. ACETYLSALICYLIC ACID [Concomitant]
     Dates: start: 1995

REACTIONS (2)
  - Diarrhoea [Recovered/Resolved]
  - Dehydration [Recovered/Resolved]
